FAERS Safety Report 8617939-3 (Version None)
Quarter: 2012Q3

REPORT INFORMATION
  Report Type: 
  Country: None (occurrence: None)
  Receive Date: 20120824
  Receipt Date: 20120319
  Transmission Date: 20120928
  Serious: No
  Sender: FDA-Public Use
  Company Number: US-ASTRAZENECA-2012SE18578

PATIENT
  Age: 54 Year
  Sex: Female
  Weight: 65.8 kg

DRUGS (7)
  1. SINGULAIR [Concomitant]
  2. SYMBICORT [Suspect]
     Dosage: 160/4.5 MCG, UNKNOWN DOSE AND FREQUENCY
     Route: 055
     Dates: start: 20120101
  3. SYMBICORT [Suspect]
     Indication: CHRONIC OBSTRUCTIVE PULMONARY DISEASE
     Dosage: 80/4.5 MCG, 2 PUFFS 2 TIMES A DAY
     Route: 055
     Dates: start: 20090101
  4. FORADIL [Concomitant]
  5. SYMBICORT [Suspect]
     Dosage: 160/4.5 MCG, UNKNOWN DOSE AND FREQUENCY
     Route: 055
     Dates: start: 20120101
  6. ALBUTEROL [Concomitant]
  7. SYMBICORT [Suspect]
     Indication: HYPERSENSITIVITY
     Dosage: 80/4.5 MCG, 2 PUFFS 2 TIMES A DAY
     Route: 055
     Dates: start: 20090101

REACTIONS (4)
  - DYSPHAGIA [None]
  - FUNGAL INFECTION [None]
  - OROPHARYNGEAL PAIN [None]
  - PYREXIA [None]
